FAERS Safety Report 4661376-3 (Version None)
Quarter: 2005Q2

REPORT INFORMATION
  Report Type: 
  Country: None (occurrence: None)
  Receive Date: 20050513
  Receipt Date: 20050429
  Transmission Date: 20051028
  Serious: Yes (Other)
  Sender: FDA-Public Use
  Company Number: PHEH2005US05103

PATIENT
  Age: 61 Year
  Sex: Female
  Weight: 81 kg

DRUGS (6)
  1. ZOFRAN [Concomitant]
     Dosage: 8 MG, QD
     Route: 048
  2. ARANESP [Concomitant]
     Indication: ANAEMIA
     Dosage: 0.2 MG, PRN
     Route: 058
  3. ATACAND [Concomitant]
  4. NEXIUM [Concomitant]
     Dosage: 40 MG, PRN
     Route: 048
  5. GLEEVEC [Suspect]
     Indication: GASTROINTESTINAL STROMAL TUMOUR
     Dosage: 500 MG, QD
     Route: 048
     Dates: start: 20020809
  6. GLEEVEC [Suspect]
     Dosage: 600 MG, QD

REACTIONS (3)
  - BREAST CANCER IN SITU [None]
  - MALIGNANT BREAST LUMP REMOVAL [None]
  - MASTECTOMY [None]
